FAERS Safety Report 14667546 (Version 2)
Quarter: 2018Q2

REPORT INFORMATION
  Report Type: Spontaneous
  Country: ES (occurrence: ES)
  Receive Date: 20180322
  Receipt Date: 20180418
  Transmission Date: 20180711
  Serious: Yes (Hospitalization)
  Sender: FDA-Public Use
  Company Number: ES-MYLANLABS-2018M1017456

PATIENT
  Age: 26 Year
  Sex: Female
  Weight: 49 kg

DRUGS (7)
  1. MORPHINE [Suspect]
     Active Substance: MORPHINE
     Indication: TUMOUR PAIN
     Dosage: DOSAGE FORM: UNSPECIFIED, QD
     Route: 062
     Dates: start: 20171201
  2. SUNITINIB [Suspect]
     Active Substance: SUNITINIB
     Indication: SYNOVIAL SARCOMA
     Dosage: 37.5 MG, QD
     Route: 048
     Dates: start: 20180110
  3. ZALDIAR [Concomitant]
     Active Substance: ACETAMINOPHEN\TRAMADOL HYDROCHLORIDE
     Indication: TUMOUR PAIN
     Dosage: DOSAGE FORM: UNSPECIFIED
     Route: 048
  4. IBUPROFEN. [Concomitant]
     Active Substance: IBUPROFEN
     Indication: TUMOUR PAIN
     Dosage: DOSAGE FORM: UNSPECIFIED
     Route: 048
  5. SUNITINIB [Suspect]
     Active Substance: SUNITINIB
     Indication: PRODUCT USED FOR UNKNOWN INDICATION
     Dosage: 37.5 MG, QD
     Route: 048
     Dates: start: 20171227, end: 20180103
  6. FENTANYL. [Suspect]
     Active Substance: FENTANYL
     Indication: TUMOUR PAIN
     Dosage: DOSAGE FORM: UNSPECIFIED
     Route: 062
  7. ENANTYUM [Concomitant]
     Active Substance: DEXKETOPROFEN TROMETAMOL
     Indication: TUMOUR PAIN
     Dosage: DOSAGE FORM: UNSPECIFIED
     Route: 048

REACTIONS (2)
  - Urinary tract infection [Recovered/Resolved]
  - Vomiting [Recovered/Resolved]

NARRATIVE: CASE EVENT DATE: 20180103
